FAERS Safety Report 7585368-X (Version None)
Quarter: 2011Q3

REPORT INFORMATION
  Report Type: 
  Country: None (occurrence: None)
  Receive Date: 20110701
  Receipt Date: 20110620
  Transmission Date: 20111222
  Serious: Yes (Other)
  Sender: FDA-Public Use
  Company Number: US-BAYER-200929259NA

PATIENT
  Age: 81 Year
  Sex: Female
  Weight: 49.887 kg

DRUGS (51)
  1. ACETYLSALICYLIC ACID SRT [Concomitant]
     Dosage: 325 MG, QD
     Route: 048
  2. MANNITOL [Concomitant]
     Dosage: UNK
     Route: 042
     Dates: start: 20051202, end: 20051202
  3. MORPHINE [Concomitant]
     Dosage: 3-6 MG Q3HR PRN
     Route: 042
     Dates: start: 20051202
  4. VANCOMYCIN [Concomitant]
     Indication: ENTEROCOCCAL SEPSIS
     Dosage: 500 MG, UNK
     Route: 042
  5. DOPAMINE HCL [Concomitant]
     Dosage: UNK
     Route: 041
     Dates: start: 20051202, end: 20051207
  6. TRASYLOL [Suspect]
     Indication: CORONARY ARTERY BYPASS
     Dosage: 1 ML, ONCE (INITIAL)
     Route: 042
     Dates: start: 20051202, end: 20051202
  7. VYTORIN [Concomitant]
     Dosage: 10/20 MG, DAILY
     Route: 048
     Dates: start: 20051003
  8. PREDNISONE [Concomitant]
     Dosage: 20 MG, QD
     Route: 048
  9. NITROGLYCERIN [Concomitant]
     Dosage: DRIP PER PROTOCOL
     Route: 041
     Dates: start: 20051201
  10. NAPROXEN (ALEVE) [Concomitant]
     Dosage: 440 MG, (2 TABLETS OF 220MG) QD
     Route: 048
  11. PROTAMINE SULFATE [Concomitant]
     Dosage: UNK
     Route: 042
     Dates: start: 20051202
  12. SODIUM BICARBONATE [Concomitant]
     Dosage: UNK
     Route: 042
     Dates: start: 20051202, end: 20051206
  13. BLOOD AND RELATED PRODUCTS [Concomitant]
     Dosage: 2 U, UNK
     Dates: start: 20051204
  14. BLOOD AND RELATED PRODUCTS [Concomitant]
     Dosage: 1 U, UNK
     Dates: start: 20051220
  15. BLOOD AND RELATED PRODUCTS [Concomitant]
     Dosage: 1 U, UNK
     Dates: start: 20051225
  16. PLATELETS [Concomitant]
     Indication: THROMBOCYTOPENIA
     Dosage: 8 U, UNK
     Dates: start: 20051206
  17. TRASYLOL [Suspect]
     Dosage: 100 ML (LOADING)
     Route: 042
     Dates: start: 20051202, end: 20051202
  18. LASIX [Concomitant]
     Indication: OEDEMA
     Dosage: 20 MG, PRN
     Route: 048
  19. LOPRESSOR [Concomitant]
     Dosage: 25 MG, TID
     Route: 048
     Dates: start: 20051201
  20. CONTRAST MEDIA [Concomitant]
     Indication: CATHETERISATION CARDIAC
     Dosage: 3 ML, UNK
     Dates: start: 20051201
  21. BLOOD AND RELATED PRODUCTS [Concomitant]
     Dosage: 2 U, TRANSFUSED
     Dates: start: 20051202
  22. BLOOD AND RELATED PRODUCTS [Concomitant]
     Dosage: 2 U, UNK
     Dates: start: 20090827
  23. NIPRIDE [Concomitant]
     Dosage: UNK
     Route: 041
     Dates: start: 20051208
  24. FOSAMAX [Concomitant]
     Dosage: 70 MG, OW
     Route: 048
  25. MICARDIS [Concomitant]
     Dosage: 40 MG, QD
     Route: 048
     Dates: start: 20050912
  26. LISINOPRIL [Concomitant]
     Dosage: 10 MG, QD
     Route: 048
     Dates: start: 20050825, end: 20050912
  27. ZINACEF [Concomitant]
     Dosage: 1.5 G, BID (FOR THREE DOSES)
     Route: 042
     Dates: start: 20051202
  28. TOBRAMYCIN [Concomitant]
     Route: 042
  29. IBUPROFEN [Concomitant]
     Dosage: UNK UNK, PRN
     Route: 048
  30. PLATELETS [Concomitant]
     Dosage: 8 U, UNK
     Dates: start: 20051208
  31. TRASYLOL [Suspect]
     Dosage: 50 ML/HR (INFUSION)
     Route: 042
     Dates: start: 20051202, end: 20051202
  32. FAMVIR [Concomitant]
     Dosage: 500 MG, QD
     Route: 048
  33. LIDOCAINE [Concomitant]
     Dosage: UNK
     Route: 042
     Dates: start: 20051202, end: 20051202
  34. VERSED [Concomitant]
     Dosage: UNK
     Route: 042
     Dates: start: 20051202
  35. OMNIPAQUE 140 [Concomitant]
     Indication: CATHETER PLACEMENT
     Dosage: 10 ML
     Dates: start: 20051219
  36. TRASYLOL [Suspect]
     Dosage: 200 ML (PRIME)
     Route: 042
     Dates: start: 20051202, end: 20051202
  37. PRILOSEC [Concomitant]
     Dosage: 20 MG, QD
     Route: 048
  38. HEPARIN [Concomitant]
     Dosage: UNK
     Route: 042
     Dates: start: 20051202, end: 20051202
  39. INSULIN [Concomitant]
     Dosage: UNK
     Route: 042
     Dates: start: 20051202
  40. BLOOD AND RELATED PRODUCTS [Concomitant]
     Dosage: 1 U, UNK
     Dates: start: 20051208
  41. SOLUTIONS FOR PARENTERAL NUTRITION [Concomitant]
     Dosage: UNK
     Dates: start: 20051207
  42. NITROGLYCERIN [Concomitant]
     Dosage: UNK
     Route: 041
     Dates: start: 20051202
  43. HEPARIN [Concomitant]
     Dosage: DRIP PER PROTOCOL
     Route: 041
     Dates: start: 20051201
  44. VANCOMYCIN [Concomitant]
     Indication: SEPSIS
     Dosage: UNK
     Dates: start: 20060105, end: 20060110
  45. VANCOMYCIN [Concomitant]
     Dosage: UNK
     Dates: start: 20060126, end: 20060131
  46. DOPAMINE HCL [Concomitant]
     Dosage: UNK
     Route: 041
     Dates: start: 20060116
  47. OMNIPAQUE 140 [Concomitant]
     Indication: CORONARY ANGIOPLASTY
     Dosage: 120 ML, UNK
     Dates: start: 20051202
  48. NUBAIN [Concomitant]
     Dosage: UNK
     Route: 041
     Dates: start: 20051208
  49. AMPICILLIN SODIUM [Concomitant]
     Indication: ENTEROCOCCAL SEPSIS
     Dosage: UNK
     Dates: start: 20060105
  50. CALCIUM CHLORIDE [Concomitant]
     Dosage: UNK
     Route: 042
     Dates: start: 20051202
  51. LEVOPHED [Concomitant]
     Dosage: UNK
     Route: 041
     Dates: start: 20051202, end: 20051211

REACTIONS (5)
  - EMOTIONAL DISTRESS [None]
  - PAIN [None]
  - INJURY [None]
  - RENAL FAILURE [None]
  - ANXIETY [None]
